FAERS Safety Report 5246157-4 (Version None)
Quarter: 2007Q1

REPORT INFORMATION
  Report Type: 
  Country: None (occurrence: None)
  Receive Date: 20070220
  Receipt Date: 20070205
  Transmission Date: 20070707
  Serious: Yes (Hospitalization)
  Sender: FDA-Public Use
  Company Number: S07-GER-00169-01

PATIENT
  Sex: Female

DRUGS (6)
  1. ESCITALOPRAM [Suspect]
     Dosage: 15 MG QD PO
     Route: 048
     Dates: start: 20040101
  2. ESCITALOPRAM [Suspect]
     Dosage: 10 MG QD PO
     Route: 048
  3. ESCITALOPRAM [Suspect]
     Dosage: 20 MG QD PO
     Route: 048
  4. DISULFIRAM [Suspect]
     Dosage: 500 MG QD
     Dates: start: 20060901
  5. DISULFIRAM [Suspect]
     Dosage: 100 MG QD
     Dates: start: 20060801, end: 20060901
  6. ELMENDOS (LAMOTRIGINE) [Concomitant]

REACTIONS (6)
  - AGITATION [None]
  - AMNESIA [None]
  - COGNITIVE DISORDER [None]
  - ORAL INTAKE REDUCED [None]
  - SEROTONIN SYNDROME [None]
  - SPEECH DISORDER [None]
